FAERS Safety Report 8932385 (Version 4)
Quarter: 2013Q4

REPORT INFORMATION
  Report Type: Spontaneous
  Country: US (occurrence: US)
  Receive Date: 20121128
  Receipt Date: 20131219
  Transmission Date: 20140711
  Serious: Yes (Hospitalization, Disabling, Other)
  Sender: FDA-Public Use
  Company Number: US-009507513-1211USA010215

PATIENT
  Sex: Female
  Weight: 90.7 kg

DRUGS (1)
  1. NUVARING [Suspect]
     Indication: CONTRACEPTION
     Dosage: UNK
     Route: 067
     Dates: start: 2009, end: 20120306

REACTIONS (15)
  - Pulmonary embolism [Unknown]
  - Migraine [Unknown]
  - Vaginal discharge [Unknown]
  - Deep vein thrombosis [Unknown]
  - Menstruation irregular [Unknown]
  - Lymphadenopathy [Unknown]
  - Castleman^s disease [Unknown]
  - Chest pain [Unknown]
  - Treatment noncompliance [Unknown]
  - Biopsy lymph gland [Unknown]
  - Anaemia [Unknown]
  - Dizziness [Unknown]
  - Headache [Unknown]
  - Fatigue [Unknown]
  - Stress at work [Unknown]
